FAERS Safety Report 7490441-0 (Version None)
Quarter: 2011Q2

REPORT INFORMATION
  Report Type: 
  Country: None (occurrence: None)
  Receive Date: 20110519
  Receipt Date: 20110509
  Transmission Date: 20111010
  Serious: No
  Sender: FDA-Public Use
  Company Number: US-PFIZER INC-2011048315

PATIENT
  Sex: Female
  Weight: 50 kg

DRUGS (4)
  1. NORFLEX [Suspect]
     Indication: BACK PAIN
     Dosage: UNK
  2. VISTARIL [Suspect]
     Indication: BACK PAIN
     Dosage: UNK
     Dates: start: 20110201
  3. VISTARIL [Suspect]
     Indication: NECK PAIN
  4. NORFLEX [Suspect]
     Indication: NECK PAIN

REACTIONS (3)
  - LIMB DISCOMFORT [None]
  - FALL [None]
  - ARTHRALGIA [None]
